FAERS Safety Report 15764196 (Version 2)
Quarter: 2019Q1

REPORT INFORMATION
  Report Type: Spontaneous
  Country: US (occurrence: US)
  Receive Date: 20181227
  Receipt Date: 20190102
  Transmission Date: 20190417
  Serious: Yes (Hospitalization, Other)
  Sender: FDA-Public Use
  Company Number: US-PCCINC-2017-PEL-003267

PATIENT

DRUGS (7)
  1. GABLOFEN [Suspect]
     Active Substance: BACLOFEN
     Indication: MUSCLE SPASTICITY
     Dosage: UNK (4000 MCG/ML)
     Route: 037
     Dates: start: 20110715, end: 20130905
  2. BUSPAR [Concomitant]
     Active Substance: BUSPIRONE HYDROCHLORIDE
     Dosage: UNK
     Route: 065
  3. RANITIDINE. [Concomitant]
     Active Substance: RANITIDINE
     Dosage: UNK
     Route: 065
  4. GABLOFEN [Suspect]
     Active Substance: BACLOFEN
     Indication: HYPOXIC-ISCHAEMIC ENCEPHALOPATHY
     Dosage: 420 ?G, QD (2000 MCG/ML)
     Route: 037
     Dates: start: 201008
  5. ABILIFY [Concomitant]
     Active Substance: ARIPIPRAZOLE
     Dosage: UNK
     Route: 065
  6. GABLOFEN [Suspect]
     Active Substance: BACLOFEN
     Indication: PARAPARESIS
     Dosage: UNK (2000 MCG/ML)
     Route: 037
     Dates: start: 20130906
  7. PROZAC [Concomitant]
     Active Substance: FLUOXETINE HYDROCHLORIDE
     Dosage: UNK
     Route: 065

REACTIONS (5)
  - Implant site extravasation [Recovered/Resolved]
  - Intra-abdominal fluid collection [Recovered/Resolved]
  - Device failure [Recovered/Resolved]
  - Implant site erosion [Recovered/Resolved]
  - Muscle spasticity [Unknown]

NARRATIVE: CASE EVENT DATE: 20170903
